FAERS Safety Report 7176603-0 (Version None)
Quarter: 2010Q4

REPORT INFORMATION
  Report Type: 
  Country: None (occurrence: None)
  Receive Date: 20101220
  Receipt Date: 20101206
  Transmission Date: 20110411
  Serious: Yes (Other)
  Sender: FDA-Public Use
  Company Number: PHHY2009CA28461

PATIENT
  Sex: Male

DRUGS (7)
  1. CLOZARIL [Suspect]
     Dosage: 300 MG HS
     Route: 048
     Dates: start: 19930121
  2. ATENOLOL [Concomitant]
  3. SYNTHROID [Concomitant]
  4. RANITIDIN ^ALIUD PHARMA^ [Concomitant]
  5. CALCIUM [Concomitant]
  6. ATIVAN [Concomitant]
  7. VITAMIN D [Concomitant]

REACTIONS (12)
  - ANAEMIA [None]
  - DIABETES INSIPIDUS [None]
  - DIALYSIS [None]
  - HAEMODIALYSIS [None]
  - HYPERTENSION [None]
  - HYPOTHYROIDISM [None]
  - NEPHROPATHY TOXIC [None]
  - NEUTROPENIA [None]
  - RENAL FAILURE [None]
  - SCHIZOPHRENIA [None]
  - THERAPEUTIC AGENT TOXICITY [None]
  - THROMBOCYTOPENIA [None]
